FAERS Safety Report 4352832-6 (Version None)
Quarter: 2004Q2

REPORT INFORMATION
  Report Type: 
  Country: None (occurrence: None)
  Receive Date: 20040504
  Receipt Date: 20040421
  Transmission Date: 20050107
  Serious: Yes (Hospitalization)
  Sender: FDA-Public Use
  Company Number: PHBS2004TR05425

PATIENT
  Age: 72 Year
  Sex: Female

DRUGS (2)
  1. LETROZOLE [Suspect]
     Indication: BREAST CANCER STAGE II
     Dosage: 2.5 MG/D
     Route: 065
     Dates: start: 20010501
  2. WARFARIN SODIUM [Suspect]
     Dosage: 5 MG/D
     Route: 065
     Dates: start: 20010501

REACTIONS (4)
  - DRUG INTERACTION [None]
  - HYPERCOAGULATION [None]
  - INTERNATIONAL NORMALISED RATIO DECREASED [None]
  - PULMONARY EMBOLISM [None]
